FAERS Safety Report 14146659 (Version 5)
Quarter: 2018Q4

REPORT INFORMATION
  Report Type: Spontaneous
  Country: US (occurrence: US)
  Receive Date: 20171031
  Receipt Date: 20181228
  Transmission Date: 20190204
  Serious: Yes (Other)
  Sender: FDA-Public Use
  Company Number: US-PFIZER INC-2016284919

PATIENT
  Age: 57 Year
  Sex: Female

DRUGS (24)
  1. RAPAMUNE [Suspect]
     Active Substance: SIROLIMUS
     Indication: HEART TRANSPLANT
     Dosage: 2 MG, 1X/DAY
     Dates: start: 20110923
  2. RAPAMUNE [Suspect]
     Active Substance: SIROLIMUS
     Dosage: 3 DF, DAILY
     Dates: start: 201603
  3. VITAMIN D3 [Concomitant]
     Active Substance: CHOLECALCIFEROL
     Dosage: 1000 IU, DAILY
     Route: 048
  4. TYLENOL PM EXTRA STRENGTH [Concomitant]
     Active Substance: ACETAMINOPHEN\DIPHENHYDRAMINE HYDROCHLORIDE
     Dosage: 2 DF, AS NEEDED [DIPHENHYDRAMINE 26MG-ACETAMINOPHEN 500MG][TAKE 2 TABLETS NIGHTLY]
     Route: 048
  5. PROGRAF [Concomitant]
     Active Substance: TACROLIMUS\TACROLIMUS ANHYDROUS
     Dosage: 0.5 MG, 2X/DAY
     Route: 048
  6. PROGRAF [Concomitant]
     Active Substance: TACROLIMUS\TACROLIMUS ANHYDROUS
     Dosage: 1 MG, 2X/DAY
     Route: 048
  7. PRAVACHOL [Concomitant]
     Active Substance: PRAVASTATIN SODIUM
     Dosage: 20 MG, UNK
  8. PROAIR HFA [Concomitant]
     Active Substance: ALBUTEROL SULFATE
     Indication: WHEEZING
     Dosage: UNK, AS NEEDED (90 MCG/ACTUATION, INHALE 1-2 PUFFS EVERY 6 (SIX) HOURS)
  9. ZESTRIL [Concomitant]
     Active Substance: LISINOPRIL
     Dosage: 5 MG, 1X/DAY (NIGHTLY)
     Route: 048
  10. THERAGRAN [Concomitant]
     Active Substance: VITAMINS
     Dosage: 1 DF, DAILY
     Route: 048
  11. RAPAMUNE [Suspect]
     Active Substance: SIROLIMUS
     Indication: PROPHYLAXIS AGAINST TRANSPLANT REJECTION
     Dosage: 3 DF, DAILY
     Dates: start: 201203, end: 20160112
  12. RAPAMUNE [Suspect]
     Active Substance: SIROLIMUS
     Dosage: 2 MG, DAILY (2 TABLETS (2MG TOTAL ) BY MOUTH DAILY)
     Route: 048
     Dates: start: 20181218
  13. VENTOLINE [SALBUTAMOL] [Concomitant]
     Active Substance: ALBUTEROL SULFATE
     Indication: WHEEZING
     Dosage: UNK, AS NEEDED (90 MCG/ACTUATION HFA INHALER, INHALE 1-2 PUFFS EVERY 6 (SIX) HOURS)
  14. RAPAMUNE [Suspect]
     Active Substance: SIROLIMUS
     Dosage: 2 MG, DAILY (1MG, TAKE 2 TABLETS DAILY)/. TAKE 2 TABLETS (2 MG TOTAL)
     Route: 048
     Dates: start: 20171018
  15. LISINOPRIL. [Concomitant]
     Active Substance: LISINOPRIL
     Indication: HYPERTENSION
     Dosage: UNK
  16. PROVENTIL [Concomitant]
     Active Substance: ALBUTEROL
     Indication: WHEEZING
     Dosage: UNK, AS NEEDED (90 MCG/ACTUATION HFA INHALER, INHALE 1-2 PUFFS EVERY 6 (SIX) HOURS)
  17. CELEXA [Concomitant]
     Active Substance: CITALOPRAM HYDROBROMIDE
     Dosage: 20 MG, 1X/DAY
     Route: 048
  18. LIPITOR [Concomitant]
     Active Substance: ATORVASTATIN CALCIUM
     Dosage: 20 MG, DAILY
     Route: 048
  19. SYMBICORT [Concomitant]
     Active Substance: BUDESONIDE\FORMOTEROL FUMARATE DIHYDRATE
     Dosage: UNK, 2X/DAY [BUDESONIDE 160- FORMOTEROL FUMARATE 4.5 MCG/ACTUATION, INHALE 2 PUFFS2 TIMES A DAY]
  20. RAPAMUNE [Suspect]
     Active Substance: SIROLIMUS
     Dosage: UNK
  21. TACROLIMUS. [Concomitant]
     Active Substance: TACROLIMUS
     Dosage: UNK
  22. PRINIVIL [Concomitant]
     Active Substance: LISINOPRIL
     Dosage: 5 MG, 1X/DAY (NIGHTLY)
     Route: 048
  23. SINGULAIR [Concomitant]
     Active Substance: MONTELUKAST SODIUM
     Dosage: 10 MG, 1X/DAY (NIGHTLY)
     Route: 048
  24. TURMERIC [Concomitant]
     Active Substance: HERBALS\TURMERIC
     Dosage: 500 MG, DAILY [(TURMERIC-TURMERIC EXT-PEPPER) 500-3MG ]
     Route: 048

REACTIONS (6)
  - Cytomegalovirus infection [Recovered/Resolved]
  - Product use in unapproved indication [Unknown]
  - Cataract [Unknown]
  - Herpes zoster [Unknown]
  - Skin lesion [Unknown]
  - Back pain [Unknown]

NARRATIVE: CASE EVENT DATE: 20110923
